FAERS Safety Report 11558072 (Version 1)
Quarter: 2015Q3

REPORT INFORMATION
  Report Type: Spontaneous
  Country: EG (occurrence: EG)
  Receive Date: 20150928
  Receipt Date: 20150928
  Transmission Date: 20151125
  Serious: Yes (Other)
  Sender: FDA-Public Use
  Company Number: EG-ROCHE-1638236

PATIENT
  Age: 51 Year
  Sex: Male

DRUGS (3)
  1. COSOPT [Concomitant]
     Active Substance: DORZOLAMIDE HYDROCHLORIDE\TIMOLOL MALEATE
     Route: 065
     Dates: start: 20110106, end: 20150604
  2. LUCENTIS [Suspect]
     Active Substance: RANIBIZUMAB
     Indication: RETINAL VEIN OCCLUSION
     Route: 050
     Dates: start: 20150228, end: 20150228
  3. ALPHAGAN P [Concomitant]
     Active Substance: BRIMONIDINE TARTRATE
     Route: 065
     Dates: start: 20110108, end: 20150604

REACTIONS (2)
  - Retinal artery occlusion [Not Recovered/Not Resolved]
  - Ocular hypertension [Unknown]

NARRATIVE: CASE EVENT DATE: 20150604
